FAERS Safety Report 8813503 (Version 1)
Quarter: 2012Q4

REPORT INFORMATION
  Report Type: 
  Country: US (occurrence: US)
  Receive Date: 20120927
  Receipt Date: 20120927
  Transmission Date: 20130627
  Serious: No
  Sender: FDA-Public Use
  Company Number: US-AMGEN-USASP2012044415

PATIENT
  Sex: Male

DRUGS (5)
  1. PROLIA [Suspect]
     Dosage: 60 mg, q6mo
     Route: 058
     Dates: start: 20100708
  2. LISINOPRIL [Concomitant]
  3. ALPRAZOLAM [Concomitant]
  4. CALCIUM [Concomitant]
  5. VITAMINS                           /00067501/ [Concomitant]
     Dosage: 60 mg, q6mo
     Route: 058
     Dates: start: 20100708

REACTIONS (2)
  - Fall [Unknown]
  - Pain [Not Recovered/Not Resolved]
